FAERS Safety Report 13512431 (Version 1)
Quarter: 2017Q2

REPORT INFORMATION
  Report Type: Spontaneous
  Country: US (occurrence: US)
  Receive Date: 20170504
  Receipt Date: 20170504
  Transmission Date: 20170830
  Serious: Yes (Hospitalization)
  Sender: FDA-Public Use
  Company Number: None

PATIENT
  Age: 69 Year
  Sex: Male

DRUGS (2)
  1. PEMBROLIZUMAB. [Suspect]
     Active Substance: PEMBROLIZUMAB
     Indication: ADENOCARCINOMA
     Route: 042
     Dates: start: 20170302, end: 20170302
  2. ATORVASTATIN [Suspect]
     Active Substance: ATORVASTATIN
     Indication: HYPERLIPIDAEMIA
     Route: 048
     Dates: start: 20151010, end: 20170321

REACTIONS (10)
  - Diplopia [None]
  - Vision blurred [None]
  - Diarrhoea [None]
  - Tachyarrhythmia [None]
  - Myositis [None]
  - Hepatic enzyme increased [None]
  - Fatigue [None]
  - Asthenia [None]
  - Decreased appetite [None]
  - Alanine aminotransferase increased [None]

NARRATIVE: CASE EVENT DATE: 20170320
